FAERS Safety Report 9037547 (Version 1)
Quarter: 2013Q1

REPORT INFORMATION
  Report Type: Spontaneous
  Country: US (occurrence: US)
  Receive Date: 20130129
  Receipt Date: 20130129
  Transmission Date: 20140127
  Serious: Yes (Hospitalization, Other)
  Sender: FDA-Public Use
  Company Number: US-AMGEN-USASP2012064748

PATIENT
  Age: 53 Year
  Sex: Female

DRUGS (8)
  1. PROLIA [Suspect]
     Indication: PRODUCT USED FOR UNKNOWN INDICATION
     Dosage: UNK
  2. PROLIA [Suspect]
  3. CITRACAL                           /00751520/ [Concomitant]
     Dosage: UNK
  4. DIGOXIN [Concomitant]
     Dosage: UNK
  5. NADOLOL [Concomitant]
     Dosage: UNK
  6. VITAMIN D [Concomitant]
  7. CITRACAL [Concomitant]
  8. ZOFRAN [Concomitant]

REACTIONS (10)
  - Streptococcal urinary tract infection [Not Recovered/Not Resolved]
  - Pathological fracture [Unknown]
  - Ankle fracture [Unknown]
  - Fibula fracture [Unknown]
  - Bone disorder [Unknown]
  - Bone pain [Unknown]
  - Abasia [Unknown]
  - Insomnia [Unknown]
  - N-telopeptide urine abnormal [Unknown]
  - Exostosis [Unknown]
